FAERS Safety Report 15291501 (Version 1)
Quarter: 2018Q3

REPORT INFORMATION
  Report Type: Spontaneous
  Country: US (occurrence: US)
  Receive Date: 20180817
  Receipt Date: 20180817
  Transmission Date: 20181010
  Serious: Yes (Life-Threatening, Other)
  Sender: FDA-Public Use
  Company Number: US-SAGENT PHARMACEUTICALS-2018SAG001475

PATIENT

DRUGS (8)
  1. LEVOPHED [Concomitant]
     Active Substance: NOREPINEPHRINE BITARTRATE
  2. SODIUM BICARBONATE. [Concomitant]
     Active Substance: SODIUM BICARBONATE
  3. VECURONIUM [Concomitant]
     Active Substance: VECURONIUM BROMIDE
  4. AMIODARONE [Concomitant]
     Active Substance: AMIODARONE
  5. HEPARIN SODIUM. [Suspect]
     Active Substance: HEPARIN SODIUM
     Indication: CORONARY ARTERY BYPASS
     Dosage: 32000 U, ONCE
     Dates: start: 20180725, end: 20180725
  6. NEOSYNEPHRINE [Concomitant]
     Active Substance: PHENYLEPHRINE HYDROCHLORIDE
  7. PROTAMINE [Concomitant]
     Active Substance: PROTAMINE
  8. ALBUMIN [Concomitant]
     Active Substance: ALBUMIN HUMAN

REACTIONS (1)
  - Cardiac arrest [Unknown]

NARRATIVE: CASE EVENT DATE: 20180725
